FAERS Safety Report 4596670-8 (Version None)
Quarter: 2005Q1

REPORT INFORMATION
  Report Type: 
  Country: None (occurrence: None)
  Receive Date: 20050228
  Receipt Date: 20050211
  Transmission Date: 20050727
  Serious: Yes (Other)
  Sender: FDA-Public Use
  Company Number: 2005030666

PATIENT
  Sex: Female
  Weight: 104.3273 kg

DRUGS (3)
  1. CELEBREX [Suspect]
     Indication: ARTHRITIS
     Dosage: ORAL
     Route: 048
     Dates: end: 20000101
  2. ROFECOXIB [Suspect]
     Indication: ILL-DEFINED DISORDER
     Dates: start: 20000101
  3. DICLOFENAC SODIUM [Concomitant]

REACTIONS (7)
  - BREAST INDURATION [None]
  - BREAST SWELLING [None]
  - CONJUNCTIVITIS [None]
  - ECZEMA [None]
  - HERPES SIMPLEX [None]
  - ROTATOR CUFF SYNDROME [None]
  - SCAR [None]
